FAERS Safety Report 4853014-1 (Version None)
Quarter: 2005Q4

REPORT INFORMATION
  Report Type: 
  Country: None (occurrence: None)
  Receive Date: 20051212
  Receipt Date: 20051122
  Transmission Date: 20060501
  Serious: Yes (Other)
  Sender: FDA-Public Use
  Company Number: USA0510110797

PATIENT
  Age: 50 Year
  Sex: Female

DRUGS (2)
  1. CYMBALTA [Suspect]
     Indication: HEADACHE
     Dosage: 30 MG, ORAL
     Route: 048
     Dates: start: 20050922, end: 20050922
  2. IMITREX ^GLAXO^ (SUMATRIPTAN) [Concomitant]

REACTIONS (9)
  - ANXIETY [None]
  - BLOOD PRESSURE DECREASED [None]
  - EMOTIONAL DISTRESS [None]
  - FALL [None]
  - FEELING ABNORMAL [None]
  - HEADACHE [None]
  - SENSORY LOSS [None]
  - STRESS [None]
  - SYNCOPE VASOVAGAL [None]
